FAERS Safety Report 7280744-7 (Version None)
Quarter: 2011Q1

REPORT INFORMATION
  Report Type: 
  Country: None (occurrence: None)
  Receive Date: 20110208
  Receipt Date: 20110202
  Transmission Date: 20110831
  Serious: Yes (Other)
  Sender: FDA-Public Use
  Company Number: BE-BAXTER-2011BH002815

PATIENT
  Age: 20 Year
  Sex: Female

DRUGS (3)
  1. TOTAL BODY IRRADIATION [Suspect]
     Indication: THALASSAEMIA BETA
     Dosage: DOSE UNIT:CENTIGRAY
     Route: 065
  2. BUSULFAN [Suspect]
     Indication: THALASSAEMIA BETA
     Route: 065
  3. CYCLOPHOSPHAMIDE [Suspect]
     Indication: THALASSAEMIA BETA
     Route: 065

REACTIONS (1)
  - PREMATURE MENOPAUSE [None]
